FAERS Safety Report 9200721 (Version 1)
Quarter: 2013Q2

REPORT INFORMATION
  Report Type: Spontaneous
  Country: GB (occurrence: GB)
  Receive Date: 20130401
  Receipt Date: 20130401
  Transmission Date: 20140414
  Serious: Yes (Hospitalization, Other)
  Sender: FDA-Public Use
  Company Number: GB-009507513-1303GBR013784

PATIENT
  Age: 60 Year
  Sex: Female
  Weight: 54 kg

DRUGS (3)
  1. ADRONAT [Suspect]
     Indication: OSTEOPOROSIS
     Dosage: 70 MG, QW
     Route: 048
     Dates: start: 20110321
  2. ADCAL-D3 [Concomitant]
     Dosage: UNK
  3. CITALOPRAM HYDROBROMIDE [Concomitant]

REACTIONS (3)
  - Abscess jaw [Recovering/Resolving]
  - Malaise [Recovering/Resolving]
  - Osteonecrosis of jaw [Recovering/Resolving]
